FAERS Safety Report 4383000-X (Version None)
Quarter: 2004Q2

REPORT INFORMATION
  Report Type: 
  Country: None (occurrence: None)
  Receive Date: 20040528
  Receipt Date: 20040129
  Transmission Date: 20050107
  Serious: Yes (Other)
  Sender: FDA-Public Use
  Company Number: HQWYE723530JAN04

PATIENT
  Age: 76 Year
  Sex: Male

DRUGS (1)
  1. MYAMBUTOL [Suspect]
     Dates: start: 20030901, end: 20040101

REACTIONS (1)
  - BLINDNESS [None]
